FAERS Safety Report 5772310-7 (Version None)
Quarter: 2008Q2

REPORT INFORMATION
  Report Type: 
  Country: None (occurrence: None)
  Receive Date: 20080613
  Receipt Date: 20080604
  Transmission Date: 20081010
  Serious: Yes (Hospitalization)
  Sender: FDA-Public Use
  Company Number: NL-WYE-G01572408

PATIENT
  Sex: Male

DRUGS (2)
  1. EFFEXOR XR [Suspect]
  2. EFFEXOR XR [Suspect]
     Dosage: THERAPY NEWLY ADJUSTED: DOSE UNKNOWN

REACTIONS (3)
  - DRUG WITHDRAWAL SYNDROME [None]
  - INTENTIONAL DRUG MISUSE [None]
  - PSYCHIATRIC DECOMPENSATION [None]
